FAERS Safety Report 9575001 (Version 1)
Quarter: 2013Q4

REPORT INFORMATION
  Report Type: Spontaneous
  Country: GB (occurrence: GB)
  Receive Date: 20131001
  Receipt Date: 20131001
  Transmission Date: 20140711
  Serious: Yes (Other)
  Sender: FDA-Public Use
  Company Number: PHHY2013GB106210

PATIENT
  Age: 64 Year
  Sex: Male
  Weight: 82.55 kg

DRUGS (4)
  1. AMLODIPINE [Suspect]
     Indication: HYPERTENSION
     Dosage: 5 MG, QD
     Route: 048
     Dates: start: 20130528, end: 20130808
  2. GLICLAZIDE [Concomitant]
  3. METFORMIN [Concomitant]
  4. INSULIN GLARGINE [Concomitant]

REACTIONS (7)
  - Fluid imbalance [Recovering/Resolving]
  - Blister [Recovering/Resolving]
  - Eye oedema [Recovered/Resolved with Sequelae]
  - Local swelling [Recovering/Resolving]
  - Rash [Recovering/Resolving]
  - Visual impairment [Recovering/Resolving]
  - Joint swelling [Recovering/Resolving]
